FAERS Safety Report 8602186-1 (Version None)
Quarter: 2012Q3

REPORT INFORMATION
  Report Type: 
  Country: None (occurrence: None)
  Receive Date: 20120817
  Receipt Date: 20120809
  Transmission Date: 20120928
  Serious: Yes (Death, Life-Threatening, Hospitalization, Other)
  Sender: FDA-Public Use
  Company Number: CN-ASTRAZENECA-2010SE18148

PATIENT
  Age: 63 Year
  Sex: Male
  Weight: 67 kg

DRUGS (22)
  1. PLAVIX [Concomitant]
     Dates: start: 20100329
  2. CEREBREX [Concomitant]
  3. CRESTOR [Suspect]
     Route: 048
     Dates: start: 20100327, end: 20100422
  4. TIROFIBAN [Concomitant]
     Indication: ANTIPLATELET THERAPY
     Dates: start: 20100327
  5. ANTONIDINE [Concomitant]
  6. IMDUR [Concomitant]
  7. CRESTOR [Suspect]
     Indication: HYPERLIPIDAEMIA
     Route: 048
     Dates: start: 20100326, end: 20100326
  8. TRIMETAZIDINE [Concomitant]
     Dates: start: 20100327
  9. LOMEFLOXACIN [Concomitant]
     Indication: INFECTION
     Dates: start: 20100327
  10. CRESTOR [Suspect]
     Indication: LIPIDS ABNORMAL
     Route: 048
     Dates: start: 20100326, end: 20100326
  11. PERINDOPRIL ERBUMINE [Concomitant]
     Indication: HYPERTENSION
     Dates: start: 20100327
  12. ALLOPURINOL [Concomitant]
     Indication: HYPERURICAEMIA
     Dates: start: 20100327
  13. PLAVIX [Concomitant]
     Route: 048
     Dates: start: 20100326, end: 20100402
  14. CONTRAST MEDIA [Concomitant]
     Indication: ANGIOGRAM
     Dates: start: 20100326, end: 20100326
  15. ASPIRIN [Concomitant]
     Indication: ANTIPLATELET THERAPY
     Dates: start: 20100327, end: 20100328
  16. METOPROLOL TARTRATE [Suspect]
     Indication: CORONARY ARTERY DISEASE
     Route: 048
     Dates: start: 20100326, end: 20100330
  17. PLAVIX [Concomitant]
     Indication: ANTICOAGULANT THERAPY
     Dates: start: 20100327, end: 20100328
  18. CONTRAST MEDIA [Concomitant]
     Dates: start: 20100419, end: 20100419
  19. CRESTOR [Suspect]
     Route: 048
     Dates: start: 20100327, end: 20100422
  20. ESOMEPRAZOLE MAGNESIUM [Suspect]
     Indication: GASTROINTESTINAL HAEMORRHAGE
     Route: 048
     Dates: start: 20100326, end: 20100402
  21. PIPERACILLIN AND TAZOBACTAM [Concomitant]
     Indication: INFECTION
     Dates: start: 20100327
  22. FRUCTOSE-1 6-BIPHOSPHATASE [Concomitant]

REACTIONS (4)
  - RENAL FAILURE [None]
  - RHABDOMYOLYSIS [None]
  - GASTRIC HAEMORRHAGE [None]
  - CHEST PAIN [None]
